FAERS Safety Report 10902980 (Version 3)
Quarter: 2015Q2

REPORT INFORMATION
  Report Type: Spontaneous
  Country: JP (occurrence: JP)
  Receive Date: 20150310
  Receipt Date: 20150512
  Transmission Date: 20150821
  Serious: No
  Sender: FDA-Public Use
  Company Number: JP-ROCHE-1550021

PATIENT
  Age: 14 Year
  Sex: Male
  Weight: 56 kg

DRUGS (3)
  1. ACTEMRA [Suspect]
     Active Substance: TOCILIZUMAB
     Indication: NEUROMYELITIS OPTICA
     Route: 041
     Dates: start: 20150128
  2. PREDNISOLONE. [Concomitant]
     Active Substance: PREDNISOLONE
     Indication: NEUROMYELITIS OPTICA
     Route: 050
     Dates: start: 201303
  3. AVONEX [Suspect]
     Active Substance: INTERFERON BETA-1A
     Indication: PRODUCT USED FOR UNKNOWN INDICATION
     Route: 065
     Dates: start: 201309, end: 201502

REACTIONS (2)
  - Off label use [Unknown]
  - Neuromyelitis optica [Not Recovered/Not Resolved]

NARRATIVE: CASE EVENT DATE: 20150217
